FAERS Safety Report 17435199 (Version 1)
Quarter: 2020Q1

REPORT INFORMATION
  Report Type: Spontaneous
  Country: US (occurrence: US)
  Receive Date: 20200218
  Receipt Date: 20200218
  Transmission Date: 20200409
  Serious: Yes (Death, Life-Threatening)
  Sender: FDA-Public Use
  Company Number: None

PATIENT
  Age: 64 Year
  Sex: Female
  Weight: 80.1 kg

DRUGS (14)
  1. OXYCODONE [Suspect]
     Active Substance: OXYCODONE
     Indication: BACK PAIN
     Dosage: ?          QUANTITY:1 CAPSULE(S);OTHER FREQUENCY:Q 8HR/PRN;?
     Route: 048
     Dates: start: 20160101, end: 20180716
  2. MEVACOR [Concomitant]
     Active Substance: LOVASTATIN
  3. GLUCOPHAGE [Concomitant]
     Active Substance: METFORMIN HYDROCHLORIDE
  4. DILT-XR [Concomitant]
     Active Substance: DILTIAZEM
  5. K TAB [Concomitant]
  6. PLAVIX [Concomitant]
     Active Substance: CLOPIDOGREL BISULFATE
  7. LAMICTAL [Concomitant]
     Active Substance: LAMOTRIGINE
  8. GABEPENTIN [Suspect]
     Active Substance: GABAPENTIN
     Indication: NEUROPATHY PERIPHERAL
     Dosage: ?          QUANTITY:1 CAPSULE(S);?
     Dates: start: 20160101, end: 20180716
  9. NICODERM CQ [Concomitant]
     Active Substance: NICOTINE
  10. ADVAIR HFA [Concomitant]
     Active Substance: FLUTICASONE PROPIONATE\SALMETEROL XINAFOATE
  11. LOPRESSOR [Concomitant]
     Active Substance: METOPROLOL TARTRATE
  12. ARICEPT [Concomitant]
     Active Substance: DONEPEZIL HYDROCHLORIDE
  13. ECOTRIN [Concomitant]
     Active Substance: ASPIRIN
  14. DAZIDOX [Concomitant]

REACTIONS (7)
  - Chronic obstructive pulmonary disease [None]
  - Joint swelling [None]
  - Balance disorder [None]
  - Visual impairment [None]
  - Dysarthria [None]
  - Cardiac arrest [None]
  - Gait disturbance [None]

NARRATIVE: CASE EVENT DATE: 20180716
